APPROVED DRUG PRODUCT: CLOMIPRAMINE HYDROCHLORIDE
Active Ingredient: CLOMIPRAMINE HYDROCHLORIDE
Strength: 25MG
Dosage Form/Route: CAPSULE;ORAL
Application: A074751 | Product #001
Applicant: WATSON LABORATORIES INC
Approved: Sep 30, 1998 | RLD: No | RS: No | Type: DISCN